FAERS Safety Report 12958845 (Version 7)
Quarter: 2017Q1

REPORT INFORMATION
  Report Type: Spontaneous
  Country: IT (occurrence: IT)
  Receive Date: 20161121
  Receipt Date: 20170221
  Transmission Date: 20170428
  Serious: Yes (Death)
  Sender: FDA-Public Use
  Company Number: IT-ROCHE-1857055

PATIENT
  Sex: Male

DRUGS (3)
  1. LUCENTIS [Suspect]
     Active Substance: RANIBIZUMAB
     Indication: MACULOPATHY
     Dosage: 0,30 ML INJECTABLE SOLUTION 0.5MG/0.05ML VIAL NEEDLE WITH FILTER
     Route: 031
     Dates: start: 20160718, end: 20160718
  2. AVASTIN [Suspect]
     Active Substance: BEVACIZUMAB
     Indication: MACULOPATHY
     Dosage: 0.30 ML SOLUTION FOR INJECTION 0.5 MG/0.05 ML VIAL
     Route: 050
     Dates: start: 20160411, end: 20160411
  3. LUCENTIS [Suspect]
     Active Substance: RANIBIZUMAB
     Route: 031
     Dates: start: 20161010, end: 20161010

REACTIONS (1)
  - Myocardial infarction [Fatal]
